FAERS Safety Report 21863913 (Version 2)
Quarter: 2023Q1

REPORT INFORMATION
  Report Type: Report from Study
  Country: CA (occurrence: CA)
  Receive Date: 20230116
  Receipt Date: 20230215
  Transmission Date: 20230418
  Serious: Yes (Hospitalization)
  Sender: FDA-Public Use
  Company Number: CA-JNJFOC-20230120309

PATIENT
  Age: 12 Year
  Sex: Male
  Weight: 43 kg

DRUGS (2)
  1. STELARA [Suspect]
     Active Substance: USTEKINUMAB
     Indication: Colitis ulcerative
     Route: 058
     Dates: start: 20220215
  2. STELARA [Suspect]
     Active Substance: USTEKINUMAB
     Dosage: REINDUCTION OF 260 MG I.V THEN 90 MG S.C. Q. 4 WEEKS
     Route: 042

REACTIONS (1)
  - Osteomyelitis [Recovering/Resolving]
